FAERS Safety Report 16204243 (Version 1)
Quarter: 2019Q2

REPORT INFORMATION
  Report Type: Spontaneous
  Country: US (occurrence: US)
  Receive Date: 20190416
  Receipt Date: 20190416
  Transmission Date: 20190711
  Serious: No
  Sender: FDA-Public Use
  Company Number: US-BAUSCH-BL-2019-009825

PATIENT
  Sex: Female

DRUGS (2)
  1. LOTEMAX [Suspect]
     Active Substance: LOTEPREDNOL ETABONATE
     Indication: PRODUCT USE IN UNAPPROVED INDICATION
  2. LOTEMAX [Suspect]
     Active Substance: LOTEPREDNOL ETABONATE
     Indication: HYPERSENSITIVITY
     Route: 061
     Dates: start: 20190215, end: 20190217

REACTIONS (9)
  - Sensitive skin [Unknown]
  - Eye pruritus [Not Recovered/Not Resolved]
  - Eyelids pruritus [Unknown]
  - Skin atrophy [Unknown]
  - Product use in unapproved indication [Unknown]
  - Rash [Unknown]
  - Lacrimation increased [Not Recovered/Not Resolved]
  - Erythema of eyelid [Unknown]
  - Skin exfoliation [Unknown]

NARRATIVE: CASE EVENT DATE: 2019
